FAERS Safety Report 24533106 (Version 2)
Quarter: 2024Q4

REPORT INFORMATION
  Report Type: Spontaneous
  Country: CN (occurrence: CN)
  Receive Date: 20241022
  Receipt Date: 20241028
  Transmission Date: 20250115
  Serious: Yes (Other)
  Sender: MACLEODS
  Company Number: CN-MLMSERVICE-20241007-PI219262-00201-1

PATIENT

DRUGS (7)
  1. LIDOCAINE [Suspect]
     Active Substance: LIDOCAINE
     Indication: Epidural analgesia
     Dosage: 1 PERCENT (INITIAL DOSE OF 3 ML OF 1% LIDOCAINE +0.5% ROPIVACAINE MIXTURE 3ML)
     Route: 008
  2. LIDOCAINE [Suspect]
     Active Substance: LIDOCAINE
     Indication: Epidural analgesia
     Dosage: 1 % (3 MINUTES LATER, 7ML OF 1% LIDOCAINE AND 0.5% ROPIVACAINE MIXTURE WAS GIVEN (LOADING DOSE))
     Route: 008
  3. ROPIVACAINE [Suspect]
     Active Substance: ROPIVACAINE
     Indication: Epidural analgesia
     Dosage: 1% ROPIVACAINE 10ML/SUFENTANIL 50UG AND NORMAL SALINE 89ML
     Route: 008
  4. ROPIVACAINE [Suspect]
     Active Substance: ROPIVACAINE
     Dosage: 0.5% (3 MINUTES LATER 7ML OF 1% LIDOCAINE AND 0.5% ROPIVACAINE MIXTURE WAS GIVEN (LOADING DOSE))
     Route: 008
  5. ROPIVACAINE [Suspect]
     Active Substance: ROPIVACAINE
     Dosage: 0.5% (AN INITIAL DOSE OF 3 ML OF 1% LIDOCAINE +0.5% ROPIVACAINE MIXTURE 3ML)
     Route: 008
  6. SUFENTANIL [Suspect]
     Active Substance: SUFENTANIL
     Indication: Epidural analgesia
     Dosage: (100ML, 1% ROPIVACAINE 10ML, SUFENTANIL 50UG AND NORMAL SALINE 89ML)
     Route: 008
  7. SODIUM CHLORIDE [Concomitant]
     Active Substance: SODIUM CHLORIDE
     Indication: Product used for unknown indication
     Dosage: NORMAL SALINE 89ML
     Route: 008

REACTIONS (8)
  - Cerebral hypoperfusion [Recovered/Resolved]
  - CSF pressure increased [Recovered/Resolved]
  - Intracranial pressure increased [Recovered/Resolved]
  - Coma [Recovered/Resolved]
  - Headache [Recovered/Resolved]
  - Anaesthetic complication [Recovered/Resolved]
  - Inappropriate schedule of product administration [Recovered/Resolved]
  - Maternal exposure during delivery [Unknown]
